FAERS Safety Report 11622766 (Version 1)
Quarter: 2015Q4

REPORT INFORMATION
  Report Type: Spontaneous
  Country: US (occurrence: US)
  Receive Date: 20151013
  Receipt Date: 20151013
  Transmission Date: 20160304
  Serious: No
  Sender: FDA-Public Use
  Company Number: US-JNJFOC-20150310505

PATIENT
  Age: 3 Year
  Sex: Male

DRUGS (4)
  1. CHILDRENS TYLENOL [Suspect]
     Active Substance: ACETAMINOPHEN
     Indication: PYREXIA
     Dosage: AS NEEDED
     Route: 048
     Dates: end: 20150309
  2. CHILDRENS TYLENOL [Suspect]
     Active Substance: ACETAMINOPHEN
     Route: 048
  3. CHILDRENS BENADRYL ALLERGY [Concomitant]
     Active Substance: DIPHENHYDRAMINE HYDROCHLORIDE
     Indication: SEASONAL ALLERGY
     Dosage: 1 TEASPOON EVERY 4 TO 6 HOURS, 1 WEEK
     Route: 065
  4. CHILDRENS MOTRIN SUSPENSION BERRY [Concomitant]
     Indication: PYREXIA
     Dosage: 3/4 TEASPOON, EVERY 6 HOURS AS NEEDED, 1 WEEK
     Route: 065

REACTIONS (2)
  - Urinary incontinence [Not Recovered/Not Resolved]
  - Abnormal behaviour [Not Recovered/Not Resolved]
